FAERS Safety Report 23440591 (Version 2)
Quarter: 2024Q1

REPORT INFORMATION
  Report Type: Spontaneous
  Country: IT (occurrence: IT)
  Receive Date: 20240125
  Receipt Date: 20240217
  Transmission Date: 20240410
  Serious: Yes (Other)
  Sender: FDA-Public Use
  Company Number: IT-CELLTRION INC.-2023IT018338

PATIENT

DRUGS (3)
  1. ADALIMUMAB [Suspect]
     Active Substance: ADALIMUMAB\ISOPROPYL ALCOHOL
     Indication: Hidradenitis
     Dosage: 40 MG
     Route: 065
  2. IXEKIZUMAB [Concomitant]
     Active Substance: IXEKIZUMAB
     Indication: Hidradenitis
     Dosage: 40 MG
     Route: 061
  3. CLOBETASOL PROPIONATE [Concomitant]
     Active Substance: CLOBETASOL PROPIONATE
     Indication: Hidradenitis
     Dosage: 500 MICROGRAM PER MILLIGRAM
     Route: 061

REACTIONS (3)
  - Alopecia [Recovered/Resolved]
  - Pustular psoriasis [Recovered/Resolved]
  - Paradoxical psoriasis [Recovering/Resolving]
